FAERS Safety Report 8817167 (Version 1)
Quarter: 2012Q4

REPORT INFORMATION
  Report Type: Spontaneous
  Country: IT (occurrence: None)
  Receive Date: 20121002
  Receipt Date: 20121002
  Transmission Date: 20130627
  Serious: Yes (Hospitalization)
  Sender: FDA-Public Use
  Company Number: AUR-APL-2012-04170

PATIENT
  Age: 55 Year
  Sex: Male

DRUGS (6)
  1. MIRTAZAPINE [Suspect]
     Indication: DRUG USE FOR UNKNOWN INDICATION
     Route: 048
     Dates: start: 20120908, end: 20120910
  2. PANTORC (PANTOPRAZOLE SODIUM) [Concomitant]
  3. SEROQUEL (QUETIAPINE FUMARATE) [Concomitant]
  4. DEPAKIN CHRONO (VALPROATE SODIUM) [Concomitant]
  5. LITHIUM CARBONATE (LITHIUM CARBONATE) [Concomitant]
  6. REMERON (MIRTAZAPINE) [Concomitant]

REACTIONS (10)
  - Vomiting [None]
  - Feeding disorder [None]
  - Weight decreased [None]
  - Mental disorder [None]
  - Intention tremor [None]
  - Cerebral arteriosclerosis [None]
  - Hyponatraemia [None]
  - Haemoglobin decreased [None]
  - Blood glucose increased [None]
  - Neutrophil percentage increased [None]
